FAERS Safety Report 7063159-6 (Version None)
Quarter: 2010Q4

REPORT INFORMATION
  Report Type: 
  Country: None (occurrence: None)
  Receive Date: 20101026
  Receipt Date: 20100526
  Transmission Date: 20110411
  Serious: No
  Sender: FDA-Public Use
  Company Number: US-PFIZER INC-2010050357

PATIENT
  Sex: Female

DRUGS (3)
  1. LIPITOR [Suspect]
     Dosage: UNK
  2. PRAVACHOL [Suspect]
     Dosage: UNK
  3. CRESTOR [Suspect]
     Dosage: UNK

REACTIONS (2)
  - ALOPECIA [None]
  - DRUG INEFFECTIVE [None]
